FAERS Safety Report 12844738 (Version 3)
Quarter: 2016Q4

REPORT INFORMATION
  Report Type: Spontaneous
  Country: US (occurrence: US)
  Receive Date: 20161013
  Receipt Date: 20161103
  Transmission Date: 20170207
  Serious: No
  Sender: FDA-Public Use
  Company Number: US-PFIZER INC-2016472122

PATIENT
  Age: 26 Year
  Sex: Male

DRUGS (1)
  1. BOSULIF [Suspect]
     Active Substance: BOSUTINIB MONOHYDRATE
     Indication: CHRONIC MYELOID LEUKAEMIA
     Dosage: 500 MG, 1X/DAY (DAILY/ IN THE MORNING WITH FOOD)
     Route: 048
     Dates: start: 20161024

REACTIONS (2)
  - Nausea [Unknown]
  - Diarrhoea [Unknown]
